FAERS Safety Report 10198572 (Version 1)
Quarter: 2014Q2

REPORT INFORMATION
  Report Type: Spontaneous
  Country: DE (occurrence: DE)
  Receive Date: 20140527
  Receipt Date: 20140527
  Transmission Date: 20141212
  Serious: Yes (Congenital Anomaly)
  Sender: FDA-Public Use
  Company Number: DE-TEVA-482575GER

PATIENT
  Age: 0 Year
  Sex: Female

DRUGS (4)
  1. METFORMIN [Suspect]
     Route: 064
  2. CANDESARTAN [Suspect]
     Route: 064
  3. METOPROLOL [Concomitant]
     Route: 064
  4. FOLIO [Concomitant]
     Route: 064

REACTIONS (1)
  - Ventricular septal defect [Recovered/Resolved]
